FAERS Safety Report 5212844-7 (Version None)
Quarter: 2007Q1

REPORT INFORMATION
  Report Type: 
  Country: None (occurrence: None)
  Receive Date: 20070119
  Receipt Date: 20070108
  Transmission Date: 20070707
  Serious: Yes (Other)
  Sender: FDA-Public Use
  Company Number: CA-JNJFOC-20061101184

PATIENT
  Sex: Male

DRUGS (5)
  1. IMODIUM [Suspect]
     Indication: DIARRHOEA
     Route: 048
  2. DILTIAZEM HCL [Concomitant]
  3. FLOMAX [Concomitant]
  4. ACEBUTOLOL [Concomitant]
  5. HYDROCHLOROTHIAZIDE [Concomitant]

REACTIONS (3)
  - CONSTIPATION [None]
  - PROSTATE EXAMINATION ABNORMAL [None]
  - URINARY RETENTION [None]
